FAERS Safety Report 16750396 (Version 1)
Quarter: 2019Q3

REPORT INFORMATION
  Report Type: Spontaneous
  Country: AU (occurrence: AU)
  Receive Date: 20190828
  Receipt Date: 20190828
  Transmission Date: 20191005
  Serious: Yes (Hospitalization, Other)
  Sender: FDA-Public Use
  Company Number: AU-BAYER-2019-153892

PATIENT
  Age: 53 Year
  Sex: Female

DRUGS (4)
  1. METHADONE [Concomitant]
     Active Substance: METHADONE HYDROCHLORIDE
     Indication: DRUG DEPENDENCE
     Dosage: 120 MG DAILY
  2. STIVARGA [Suspect]
     Active Substance: REGORAFENIB
     Indication: HEPATOCELLULAR CARCINOMA
     Dosage: 160 MG DAILY 3 WEEKS ON 1 WEE OFF ALTERNATING 80MG/40 MG DAILY
     Route: 048
     Dates: start: 20190224
  3. ONDANSETRON [Concomitant]
     Active Substance: ONDANSETRON
     Indication: HYPERTENSION
     Dosage: 160 MG DAILY
     Dates: start: 201901
  4. STIVARGA [Suspect]
     Active Substance: REGORAFENIB
     Indication: HEPATOCELLULAR CARCINOMA
     Dosage: 80 MG (ALTERNATING DOSE BETWEEN 80 MG-40MG)
     Dates: start: 201907, end: 20190807

REACTIONS (11)
  - Discomfort [Not Recovered/Not Resolved]
  - Hyperkeratosis [None]
  - Erythema [Not Recovered/Not Resolved]
  - Pain in extremity [Not Recovered/Not Resolved]
  - Rash [Not Recovered/Not Resolved]
  - Swelling [Not Recovered/Not Resolved]
  - Granuloma [Not Recovered/Not Resolved]
  - Nodule [Not Recovered/Not Resolved]
  - Blister [None]
  - Panniculitis [None]
  - Alopecia [None]

NARRATIVE: CASE EVENT DATE: 201908
